FAERS Safety Report 16923534 (Version 1)
Quarter: 2019Q4

REPORT INFORMATION
  Report Type: Spontaneous
  Country: US (occurrence: US)
  Receive Date: 20190823
  Receipt Date: 20190823
  Transmission Date: 20200122
  Serious: Yes (Life-Threatening)
  Sender: FDA-Public Use
  Company Number: None

PATIENT
  Age: 53 Year
  Sex: Female
  Weight: 70.1 kg

DRUGS (2)
  1. ZOSYN [Suspect]
     Active Substance: PIPERACILLIN SODIUM\TAZOBACTAM SODIUM
     Indication: OSTEOMYELITIS ACUTE
     Dosage: ?          OTHER ROUTE:IV PIGGYBACK?
     Dates: start: 20190817
  2. 0.9% SODIUM CHLORIDE [Suspect]
     Active Substance: SODIUM CHLORIDE
     Dosage: ?          OTHER ROUTE:IV PIGGYBACK?
     Dates: start: 20190817

REACTIONS (2)
  - Lip swelling [None]
  - Pruritus [None]

NARRATIVE: CASE EVENT DATE: 20190817
